FAERS Safety Report 8033334 (Version 6)
Quarter: 2013Q4

REPORT INFORMATION
  Report Type: Report from Study
  Country: IT (occurrence: IT)
  Receive Date: 20110713
  Receipt Date: 20131127
  Transmission Date: 20140711
  Serious: Yes (Hospitalization)
  Sender: FDA-Public Use
  Company Number: IT-ROCHE-788683

PATIENT
  Age: 58 Year
  Sex: Female
  Weight: 67 kg

DRUGS (8)
  1. PEG-INTERFERON ALFA 2A [Suspect]
     Indication: HEPATITIS C
     Dosage: DOSE 180/W
     Route: 058
     Dates: start: 20110111, end: 20110705
  2. RIBAVIRIN [Suspect]
     Indication: HEPATITIS C
     Route: 048
     Dates: start: 20110111, end: 20110705
  3. SERTRALINA [Concomitant]
     Indication: DEPRESSION
     Dosage: FREQUENCY: 1 CP DAY
     Route: 048
  4. OMEPRAZOLE [Concomitant]
     Indication: GASTRITIS
     Dosage: FREQUENCY: 1 CP DAY
     Route: 048
  5. LEVOTHYROXINE SODIUM [Concomitant]
     Indication: HYPOTHYROIDISM
     Dosage: FREQUENCY:1 CP DIE, DRUG REPORTED AS LEVOTIROXINA
     Route: 048
  6. AMITRIPTILINA [Concomitant]
     Indication: DEPRESSION
     Dosage: DOSE 50 , FREQUENCY: 2 CP DIE, DRUG REPORTED AS AMIRIPTILINA
     Route: 048
  7. BROMAZEPAM [Concomitant]
     Indication: ANXIETY
     Dosage: DOSE 12 GTT ONCE DAILY
     Route: 048
  8. URSODESOXYCHOLIC ACID [Concomitant]
     Route: 048

REACTIONS (7)
  - General physical health deterioration [Recovered/Resolved]
  - Aggression [Unknown]
  - Asthenia [Unknown]
  - Drop attacks [Unknown]
  - Gravitational oedema [Unknown]
  - Subarachnoid haemorrhage [Unknown]
  - Psychomotor skills impaired [Unknown]
